FAERS Safety Report 19495214 (Version 6)
Quarter: 2024Q4

REPORT INFORMATION
  Report Type: Spontaneous
  Country: IT (occurrence: IT)
  Receive Date: 20210706
  Receipt Date: 20241014
  Transmission Date: 20250114
  Serious: Yes (Death, Other)
  Sender: CELLTRION
  Company Number: IT-CELLTRION INC.-2021IT009017

PATIENT

DRUGS (24)
  1. RITUXIMAB [Suspect]
     Active Substance: RITUXIMAB
     Indication: Dermatomyositis
     Dosage: UNK
     Route: 065
  2. RITUXIMAB [Suspect]
     Active Substance: RITUXIMAB
     Dosage: IN THE FOLLOWING 2 MONTHS, IVIG AND RTX WERE RECEIVED WHILE CONTINUING GLUCOCORTICOIDS
  3. METHYLPREDNISOLONE [Suspect]
     Active Substance: METHYLPREDNISOLONE
     Indication: Dermatomyositis
     Dosage: 0.7 MG/KG DAILY TO BE SLOWLY TAPERED
     Route: 065
  4. HUMAN IMMUNOGLOBULIN G [Suspect]
     Active Substance: HUMAN IMMUNOGLOBULIN G
     Indication: Dermatomyositis
     Dosage: 2 G/KG OVER 5 CONSECUTIVE DAYS)
     Route: 042
  5. HUMAN IMMUNOGLOBULIN G [Suspect]
     Active Substance: HUMAN IMMUNOGLOBULIN G
     Indication: Immunosuppression
     Dosage: A CYCLE OF IVIG 400 MG/KG
     Route: 042
  6. HUMAN IMMUNOGLOBULIN G [Suspect]
     Active Substance: HUMAN IMMUNOGLOBULIN G
     Dosage: IN THE FOLLOWING 2 MONTHS, IVIG AND RTX WERE RECEIVED WHILE CONTINUING GLUCOCORTICOIDS
     Route: 042
  7. HUMAN IMMUNOGLOBULIN G [Suspect]
     Active Substance: HUMAN IMMUNOGLOBULIN G
     Dosage: TWO OTHER CYCLES IN THE FOLLOWING 2 MONTHS
     Route: 042
  8. HUMAN IMMUNOGLOBULIN G [Suspect]
     Active Substance: HUMAN IMMUNOGLOBULIN G
     Dosage: TREATED WITH BEGELOMAB
     Route: 042
  9. HUMAN IMMUNOGLOBULIN G [Suspect]
     Active Substance: HUMAN IMMUNOGLOBULIN G
     Dosage: 400 MG/KG
     Route: 065
  10. HUMAN IMMUNOGLOBULIN G [Suspect]
     Active Substance: HUMAN IMMUNOGLOBULIN G
     Dosage: 2 GRAM PER GRAM
     Route: 042
  11. MYCOPHENOLATE MOFETIL [Suspect]
     Active Substance: MYCOPHENOLATE MOFETIL
     Indication: Dermatomyositis
     Dosage: 1 GR DAILY, WHICH WAS INCREASED PROGRESSIVELY UP TO 3 GR DAILY OVER 3 WEEKS/OVER 3 WEEKS
     Route: 065
  12. MYCOPHENOLATE MOFETIL [Suspect]
     Active Substance: MYCOPHENOLATE MOFETIL
     Dosage: REINTRODUCED WITH LOW-DOSE PREDNISONE
     Route: 065
  13. MYCOPHENOLATE MOFETIL [Suspect]
     Active Substance: MYCOPHENOLATE MOFETIL
     Dosage: REINTRODUCED AGAIN
  14. MYCOPHENOLATE MOFETIL [Suspect]
     Active Substance: MYCOPHENOLATE MOFETIL
     Dosage: 3 GRAM, DAILY
     Route: 065
  15. PREDNISONE [Suspect]
     Active Substance: PREDNISONE
     Indication: Dermatomyositis
     Dosage: 10 MILLIGRAM
     Route: 065
  16. PREDNISONE [Suspect]
     Active Substance: PREDNISONE
     Dosage: 10 MG
     Route: 048
  17. PREDNISONE [Suspect]
     Active Substance: PREDNISONE
     Dosage: LOW-DOSE TOGETHER WITH MYCOPHENOLATE MOFETIL
     Route: 048
  18. TACROLIMUS [Suspect]
     Active Substance: TACROLIMUS
     Indication: Dermatomyositis
     Dosage: 1 GR
     Route: 065
  19. ENVARSUS XR [Suspect]
     Active Substance: TACROLIMUS
     Indication: Dermatomyositis
     Dosage: UNK
     Route: 065
  20. BEGELOMAB [Concomitant]
     Active Substance: BEGELOMAB
     Indication: Dermatomyositis
     Dosage: 4 MG/M2 DAILY FOR 5 CONSECUTIVE DAYS
     Route: 042
  21. BEGELOMAB [Concomitant]
     Active Substance: BEGELOMAB
     Dosage: NEW 5-DAY CYCLE AT THE DOSAGE OF 4 MG/M2 DAILY FOR 5 CONSECUTIVE DAYS (3 MONTHS AND A HALF FROM THE
     Route: 042
  22. BEGELOMAB [Concomitant]
     Active Substance: BEGELOMAB
     Dosage: NEW 5-DAY CYCLE AT 4 MG/M2 DAILY FOR 5 CONSECUTIVE DAYS (3 WEEKS FROM THE PREVIOUS ONE; SOON AFTER I
     Route: 042
  23. BEGELOMAB [Concomitant]
     Active Substance: BEGELOMAB
     Dosage: FOLLOWED BY MAINTENANCE THERAPY AT THE DOSAGE OF 4 MG/M2 EVERY OTHER DAY FOR ADDITIONAL ELEVEN INFUS
     Route: 042
  24. BEGELOMAB [Concomitant]
     Active Substance: BEGELOMAB
     Dosage: UNK
     Route: 042

REACTIONS (11)
  - Respiratory failure [Fatal]
  - Pneumonia aspiration [Fatal]
  - Dermatomyositis [Unknown]
  - Ileal perforation [Unknown]
  - Dehiscence [Unknown]
  - Condition aggravated [Unknown]
  - Enterococcal sepsis [Unknown]
  - Fungal peritonitis [Unknown]
  - Acute hepatitis C [Unknown]
  - Drug ineffective for unapproved indication [Unknown]
  - Off label use [Unknown]
